FAERS Safety Report 12000771 (Version 2)
Quarter: 2016Q1

REPORT INFORMATION
  Report Type: Spontaneous
  Country: AT (occurrence: AT)
  Receive Date: 20160204
  Receipt Date: 20160209
  Transmission Date: 20160526
  Serious: Yes (Hospitalization, Other)
  Sender: FDA-Public Use
  Company Number: AT-ASTRAZENECA-2016SE10862

PATIENT
  Age: 76 Year
  Sex: Female

DRUGS (1)
  1. IRESSA [Suspect]
     Active Substance: GEFITINIB
     Route: 048
     Dates: start: 201205

REACTIONS (14)
  - Dyspnoea [Unknown]
  - Hypoaesthesia oral [Unknown]
  - Fibrin D dimer increased [Unknown]
  - Pleural effusion [Unknown]
  - Nail bed inflammation [Unknown]
  - Drug resistance [Unknown]
  - General physical health deterioration [Unknown]
  - Fatigue [Unknown]
  - Malignant neoplasm progression [Unknown]
  - Metastases to bone [Unknown]
  - Asthenia [Unknown]
  - Bone lesion [Unknown]
  - Back pain [Unknown]
  - Pancytopenia [Unknown]
